FAERS Safety Report 8397421-1 (Version None)
Quarter: 2012Q2

REPORT INFORMATION
  Report Type: 
  Country: None (occurrence: None)
  Receive Date: 20120531
  Receipt Date: 20120521
  Transmission Date: 20120825
  Serious: Yes (Hospitalization)
  Sender: FDA-Public Use
  Company Number: ZA-ELI_LILLY_AND_COMPANY-ZA201205010154

PATIENT
  Age: 8 Year
  Sex: Male

DRUGS (1)
  1. HUMATROPE [Suspect]
     Indication: GROWTH HORMONE DEFICIENCY
     Dosage: 0.4 MG, QD
     Dates: start: 20111201, end: 20120519

REACTIONS (2)
  - CONSTIPATION [None]
  - UPPER RESPIRATORY TRACT INFECTION [None]
